FAERS Safety Report 6582723-1 (Version None)
Quarter: 2010Q1

REPORT INFORMATION
  Report Type: 
  Country: None (occurrence: None)
  Receive Date: 20100216
  Receipt Date: 20100205
  Transmission Date: 20100710
  Serious: Yes (Other)
  Sender: FDA-Public Use
  Company Number: US-WYE-H13424910

PATIENT
  Age: 14 Year
  Sex: Male
  Weight: 61.29 kg

DRUGS (1)
  1. IBUPROFEN (ADVIL) [Suspect]
     Indication: ANALGESIC THERAPY
     Route: 048
     Dates: start: 20100204, end: 20100204

REACTIONS (5)
  - EYE SWELLING [None]
  - NASAL OEDEMA [None]
  - OEDEMA MOUTH [None]
  - RHINORRHOEA [None]
  - URTICARIA [None]
